FAERS Safety Report 4383330-1 (Version None)
Quarter: 2004Q2

REPORT INFORMATION
  Report Type: 
  Country: None (occurrence: None)
  Receive Date: 20040622
  Receipt Date: 20040622
  Transmission Date: 20050107
  Serious: Yes (Death, Life-Threatening, Hospitalization)
  Sender: FDA-Public Use
  Company Number: None

PATIENT
  Age: 57 Year
  Sex: Male

DRUGS (5)
  1. CELEBREX [Suspect]
  2. DURAGESIC [Concomitant]
  3. MORPHINE SULFATE [Concomitant]
  4. CLINDAMYCIN [Concomitant]
  5. MOXIFLOXACIN HCL [Concomitant]

REACTIONS (9)
  - ATRIAL FIBRILLATION [None]
  - CHEST PAIN [None]
  - CHILLS [None]
  - DYSPNOEA [None]
  - HYPOKALAEMIA [None]
  - LUNG CANCER METASTATIC [None]
  - MALIGNANT NEOPLASM PROGRESSION [None]
  - OEDEMA PERIPHERAL [None]
  - PRODUCTIVE COUGH [None]
